FAERS Safety Report 10336346 (Version 1)
Quarter: 2014Q3

REPORT INFORMATION
  Report Type: Spontaneous
  Country: US (occurrence: US)
  Receive Date: 20140723
  Receipt Date: 20140723
  Transmission Date: 20150326
  Serious: Yes (Hospitalization, Other)
  Sender: FDA-Public Use
  Company Number: US-GILEAD-2014-0109503

PATIENT
  Age: 83 Year
  Sex: Female

DRUGS (18)
  1. PREDNISONE. [Concomitant]
     Active Substance: PREDNISONE
  2. MEGESTROL [Concomitant]
     Active Substance: MEGESTROL
  3. CLONIDINE. [Concomitant]
     Active Substance: CLONIDINE
  4. COUMADIN [Concomitant]
     Active Substance: WARFARIN SODIUM
  5. FUROSEMIDE. [Concomitant]
     Active Substance: FUROSEMIDE
  6. LETAIRIS [Suspect]
     Active Substance: AMBRISENTAN
     Indication: PULMONARY HYPERTENSION
     Dosage: 5 MG, QD
     Route: 065
     Dates: start: 20130724
  7. CARAFATE [Concomitant]
     Active Substance: SUCRALFATE
  8. AMOXICILLIN. [Concomitant]
     Active Substance: AMOXICILLIN
  9. COQ10                              /00517201/ [Concomitant]
  10. CALCIUM [Concomitant]
     Active Substance: CALCIUM
  11. MULTIVITAMIN                       /00097801/ [Concomitant]
     Active Substance: VITAMINS
  12. CARVEDILOL. [Concomitant]
     Active Substance: CARVEDILOL
  13. EX-LAX                             /00142201/ [Concomitant]
  14. LEVOXYL [Concomitant]
     Active Substance: LEVOTHYROXINE SODIUM
  15. ZYRTEC [Concomitant]
     Active Substance: CETIRIZINE HYDROCHLORIDE
  16. TAMOXIFEN [Concomitant]
     Active Substance: TAMOXIFEN
  17. SIMVASTATIN. [Concomitant]
     Active Substance: SIMVASTATIN
  18. POTASSIUM [Concomitant]
     Active Substance: POTASSIUM

REACTIONS (1)
  - Gastrointestinal haemorrhage [Recovered/Resolved]

NARRATIVE: CASE EVENT DATE: 20140710
